FAERS Safety Report 14892358 (Version 1)
Quarter: 2018Q2

REPORT INFORMATION
  Report Type: Spontaneous
  Country: US (occurrence: US)
  Receive Date: 20180514
  Receipt Date: 20180514
  Transmission Date: 20180711
  Serious: No
  Sender: FDA-Public Use
  Company Number: US-UNITED THERAPEUTICS-UNT-2018-001870

PATIENT
  Sex: Female
  Weight: 102.4 kg

DRUGS (5)
  1. REMODULIN [Suspect]
     Active Substance: TREPROSTINIL
     Indication: PULMONARY ARTERIAL HYPERTENSION
  2. ADEMPAS [Concomitant]
     Active Substance: RIOCIGUAT
     Dosage: 0.5 MG, BID
     Route: 065
  3. ADEMPAS [Concomitant]
     Active Substance: RIOCIGUAT
     Indication: PRODUCT USED FOR UNKNOWN INDICATION
     Dosage: 0.5 MG, UNK
     Route: 065
  4. REMODULIN [Suspect]
     Active Substance: TREPROSTINIL
     Indication: PULMONARY HYPERTENSION
     Dosage: 0.042 ?G/KG, CONTINUING
     Route: 041
     Dates: start: 20130131
  5. ADEMPAS [Concomitant]
     Active Substance: RIOCIGUAT
     Dosage: 1 MG, UNK
     Route: 065

REACTIONS (8)
  - Hypotension [Unknown]
  - Fatigue [Unknown]
  - Pollakiuria [Unknown]
  - Weight increased [Unknown]
  - Sluggishness [Unknown]
  - Somnolence [Unknown]
  - Dizziness [Unknown]
  - Malaise [Unknown]
